FAERS Safety Report 8263782-7 (Version None)
Quarter: 2012Q2

REPORT INFORMATION
  Report Type: 
  Country: None (occurrence: None)
  Receive Date: 20120405
  Receipt Date: 20120322
  Transmission Date: 20120825
  Serious: Yes (Other)
  Sender: FDA-Public Use
  Company Number: US-RANBAXY-2012US-54241

PATIENT

DRUGS (4)
  1. NAPROXEN [Concomitant]
     Dosage: 500 MG, QD
     Route: 065
  2. NAPROXEN [Suspect]
     Indication: PRODUCT USED FOR UNKNOWN INDICATION
     Dosage: UNK
     Route: 065
  3. SERTRALINE HYDROCHLORIDE [Suspect]
     Indication: DEPRESSION
     Dosage: 150MG DAILY
     Route: 048
     Dates: start: 20070101
  4. GABAPENTIN [Concomitant]
     Indication: PRODUCT USED FOR UNKNOWN INDICATION
     Dosage: 100MG TID
     Route: 065

REACTIONS (7)
  - DRUG INEFFECTIVE [None]
  - MEDICATION ERROR [None]
  - DEPRESSION [None]
  - WRONG TECHNIQUE IN DRUG USAGE PROCESS [None]
  - INTERVERTEBRAL DISC PROTRUSION [None]
  - VITAMIN D DECREASED [None]
  - FIBROMYALGIA [None]
